FAERS Safety Report 23545178 (Version 1)
Quarter: 2024Q1

REPORT INFORMATION
  Report Type: Spontaneous
  Country: RU (occurrence: RU)
  Receive Date: 20240220
  Receipt Date: 20240220
  Transmission Date: 20240409
  Serious: Yes (Other)
  Sender: FDA-Public Use
  Company Number: RU-FreseniusKabi-FK202402632

PATIENT
  Sex: Male

DRUGS (6)
  1. ETOPOSIDE [Suspect]
     Active Substance: ETOPOSIDE
     Indication: Burkitt^s lymphoma
  2. RITUXIMAB [Suspect]
     Active Substance: RITUXIMAB
     Indication: Burkitt^s lymphoma
  3. IBRUTINIB [Suspect]
     Active Substance: IBRUTINIB
     Indication: Burkitt^s lymphoma
  4. LOMUSTINE [Suspect]
     Active Substance: LOMUSTINE
     Indication: Burkitt^s lymphoma
  5. MELPHALAN [Suspect]
     Active Substance: MELPHALAN
     Indication: Burkitt^s lymphoma
  6. CYTARABINE [Suspect]
     Active Substance: CYTARABINE
     Indication: Burkitt^s lymphoma

REACTIONS (4)
  - Bone marrow failure [Recovered/Resolved]
  - Neutropenic colitis [Recovered/Resolved]
  - Toxic skin eruption [Recovered/Resolved]
  - Mucosal inflammation [Recovered/Resolved]
